FAERS Safety Report 4687504-1 (Version None)
Quarter: 2005Q2

REPORT INFORMATION
  Report Type: 
  Country: None (occurrence: None)
  Receive Date: 20050609
  Receipt Date: 20050524
  Transmission Date: 20051028
  Serious: Yes (Hospitalization)
  Sender: FDA-Public Use
  Company Number: FR-SANOFI-SYNTHELABO-F01200500815

PATIENT
  Sex: Female

DRUGS (6)
  1. OXALIPLATIN [Suspect]
     Indication: COLORECTAL CANCER
     Route: 042
     Dates: start: 20050314, end: 20050314
  2. OXALIPLATIN [Suspect]
     Route: 042
     Dates: start: 20050329, end: 20050329
  3. FLUOROURACIL [Suspect]
     Route: 042
     Dates: start: 20050316, end: 20050317
  4. FLUOROURACIL [Suspect]
     Route: 042
     Dates: start: 20050329, end: 20050330
  5. ELVORINE [Suspect]
     Route: 042
     Dates: start: 20050314, end: 20050314
  6. ELVORINE [Suspect]
     Route: 042
     Dates: start: 20050329, end: 20050329

REACTIONS (3)
  - LARYNGOSPASM [None]
  - NEUROLOGICAL SYMPTOM [None]
  - PARAESTHESIA [None]
